FAERS Safety Report 5193998-8 (Version None)
Quarter: 2006Q4

REPORT INFORMATION
  Report Type: 
  Country: None (occurrence: None)
  Receive Date: 20061228
  Receipt Date: 20061011
  Transmission Date: 20070319
  Serious: No
  Sender: FDA-Public Use
  Company Number: US-GLAXOSMITHKLINE-A0623231A

PATIENT
  Age: 62 Year
  Sex: Female
  Weight: 62.3 kg

DRUGS (2)
  1. FLOVENT [Suspect]
     Indication: ASTHMA
     Dosage: 2PUFF TWICE PER DAY
     Route: 055
     Dates: start: 20060601, end: 20060901
  2. ALBUTEROL [Concomitant]

REACTIONS (1)
  - DYSPHONIA [None]
